FAERS Safety Report 5429977-2 (Version None)
Quarter: 2007Q3

REPORT INFORMATION
  Report Type: 
  Country: None (occurrence: None)
  Receive Date: 20070829
  Receipt Date: 20070808
  Transmission Date: 20080115
  Serious: No
  Sender: FDA-Public Use
  Company Number: US-BOEHRINGER INGELHEIM PHARMACEUTICALS, INC.-2007-BP-18778BP

PATIENT
  Age: 63 Year
  Sex: Male

DRUGS (9)
  1. ZANTAC 150 [Suspect]
     Indication: DYSPEPSIA
     Route: 048
     Dates: start: 20070807
  2. ZANTAC 150 [Suspect]
  3. AMANTADINE HCL [Concomitant]
  4. SINEMET [Concomitant]
  5. SYNTHROID [Concomitant]
  6. LOTENSIN [Concomitant]
  7. SPIRONOLACTONE [Concomitant]
  8. HYDROCHLOROTHIAZIDE [Concomitant]
  9. K-DUR 10 [Concomitant]

REACTIONS (6)
  - DYSPEPSIA [None]
  - EYE DISORDER [None]
  - HYPOAESTHESIA [None]
  - HYPOAESTHESIA FACIAL [None]
  - HYPOAESTHESIA ORAL [None]
  - PHARYNGOLARYNGEAL PAIN [None]
